FAERS Safety Report 9356243 (Version 1)
Quarter: 2013Q2

REPORT INFORMATION
  Report Type: Report from Study
  Country: IN (occurrence: IN)
  Receive Date: 20130619
  Receipt Date: 20130619
  Transmission Date: 20140414
  Serious: Yes (Death, Hospitalization)
  Sender: FDA-Public Use
  Company Number: IN-GLAXOSMITHKLINE-B0900996A

PATIENT
  Age: 48 Year
  Sex: Female

DRUGS (2)
  1. SERETIDE (50MCG/500MCG) [Suspect]
     Indication: ASTHMA
     Route: 055
  2. DIABETES MEDICATION [Concomitant]
     Indication: DIABETES MELLITUS

REACTIONS (2)
  - Pleural effusion [Fatal]
  - Oedematous kidney [Unknown]
